FAERS Safety Report 12705667 (Version 1)
Quarter: 2016Q3

REPORT INFORMATION
  Report Type: Spontaneous
  Country: ZA (occurrence: ZA)
  Receive Date: 20160901
  Receipt Date: 20160901
  Transmission Date: 20161109
  Serious: Yes (Hospitalization, Other)
  Sender: FDA-Public Use
  Company Number: ZA-CIPLA LTD.-2016ZA17763

PATIENT

DRUGS (1)
  1. CARLOC [Suspect]
     Active Substance: CARVEDILOL
     Dosage: 25 MG, BID, ONE IN MORNING AND ONE IN EVENING
     Route: 065

REACTIONS (4)
  - Product quality issue [Unknown]
  - Hypertension [Unknown]
  - Disorientation [Unknown]
  - Malaise [Unknown]

NARRATIVE: CASE EVENT DATE: 2015
